FAERS Safety Report 13530617 (Version 2)
Quarter: 2018Q4

REPORT INFORMATION
  Report Type: Report from Study
  Country: None (occurrence: US)
  Receive Date: 20170510
  Receipt Date: 20181114
  Transmission Date: 20190204
  Serious: Yes (Other)
  Sender: FDA-Public Use
  Company Number: US-ABBVIE-17K-163-1872056-00

PATIENT
  Sex: Female

DRUGS (1)
  1. HUMIRA [Suspect]
     Active Substance: ADALIMUMAB
     Indication: CROHN^S DISEASE
     Route: 058
     Dates: end: 2017

REACTIONS (6)
  - Faecal volume decreased [Unknown]
  - Post procedural inflammation [Unknown]
  - Abdominal adhesions [Recovering/Resolving]
  - Crohn^s disease [Unknown]
  - Post procedural swelling [Unknown]
  - Procedural pain [Unknown]

NARRATIVE: CASE EVENT DATE: 2018
